FAERS Safety Report 8788970 (Version 1)
Quarter: 2012Q4

REPORT INFORMATION
  Report Type: Report from Study
  Country: US (occurrence: US)
  Receive Date: 20120914
  Receipt Date: 20120914
  Transmission Date: 20130627
  Serious: No
  Sender: FDA-Public Use
  Company Number: US-VERTEX PHARMACEUTICAL INC.-AE-2012-009906

PATIENT

DRUGS (4)
  1. INCIVEK [Suspect]
     Indication: HEPATITIS C
     Route: 048
     Dates: start: 201204, end: 201206
  2. PEGASYS [Concomitant]
     Indication: HEPATITIS C
     Route: 058
     Dates: start: 201204, end: 201206
  3. RIBAPAK [Concomitant]
     Indication: HEPATITIS C
     Route: 048
     Dates: start: 201204, end: 201206
  4. PROCRIT [Concomitant]
     Route: 058

REACTIONS (3)
  - Adverse event [Unknown]
  - Nausea [Unknown]
  - Vomiting [Unknown]
